FAERS Safety Report 15736157 (Version 4)
Quarter: 2019Q1

REPORT INFORMATION
  Report Type: Report from Study
  Country: None (occurrence: US)
  Receive Date: 20181218
  Receipt Date: 20190225
  Transmission Date: 20190417
  Serious: Yes (Hospitalization, Other)
  Sender: FDA-Public Use
  Company Number: US-ABBVIE-18K-163-2593963-00

PATIENT
  Age: 27 Year
  Sex: Female
  Weight: 63.56 kg

DRUGS (13)
  1. PRENATAL WITH FOLIC ACID [Concomitant]
     Indication: VITAMIN SUPPLEMENTATION
  2. HUMIRA [Suspect]
     Active Substance: ADALIMUMAB
     Route: 058
     Dates: start: 20190108, end: 20190108
  3. VITAMIN B12 [Concomitant]
     Active Substance: CYANOCOBALAMIN
     Indication: VITAMIN B12 DECREASED
  4. VITAMIN B12 [Concomitant]
     Active Substance: CYANOCOBALAMIN
     Indication: VITAMIN SUPPLEMENTATION
  5. IRON [Concomitant]
     Active Substance: IRON
     Indication: ANAEMIA
  6. PRENATAL VITAMINS [Concomitant]
     Active Substance: VITAMINS
     Indication: CROHN^S DISEASE
  7. HUMIRA [Suspect]
     Active Substance: ADALIMUMAB
     Indication: CROHN^S DISEASE
     Route: 058
     Dates: start: 201604, end: 20181016
  8. HUMIRA [Suspect]
     Active Substance: ADALIMUMAB
     Route: 058
     Dates: start: 20190122, end: 20190122
  9. ORTHO CYCLEN [Concomitant]
     Active Substance: ETHINYL ESTRADIOL\NORGESTIMATE
     Indication: CONTRACEPTION
  10. HUMIRA [Suspect]
     Active Substance: ADALIMUMAB
     Route: 058
     Dates: start: 20190129
  11. VITAMIN D [Concomitant]
     Active Substance: CHOLECALCIFEROL
     Indication: VITAMIN D DECREASED
  12. VITAMIN D3 [Concomitant]
     Active Substance: CHOLECALCIFEROL
     Indication: VITAMIN SUPPLEMENTATION
  13. VITAMIN C [Concomitant]
     Active Substance: ASCORBIC ACID
     Indication: IMMUNE SYSTEM DISORDER

REACTIONS (14)
  - Ureteric injury [Recovering/Resolving]
  - Procedural pain [Recovering/Resolving]
  - Weight fluctuation [Not Recovered/Not Resolved]
  - Procedural complication [Recovering/Resolving]
  - Crohn^s disease [Recovered/Resolved]
  - Dehydration [Recovered/Resolved]
  - Intestinal prolapse [Recovered/Resolved]
  - Small intestinal obstruction [Recovered/Resolved]
  - Abdominal adhesions [Recovered/Resolved]
  - Surgical failure [Unknown]
  - Cystitis noninfective [Recovering/Resolving]
  - Clostridium difficile infection [Recovered/Resolved]
  - Ileal stenosis [Recovered/Resolved]
  - Post procedural swelling [Recovering/Resolving]

NARRATIVE: CASE EVENT DATE: 2016
